FAERS Safety Report 13467250 (Version 1)
Quarter: 2017Q2

REPORT INFORMATION
  Report Type: Spontaneous
  Country: US (occurrence: US)
  Receive Date: 20170421
  Receipt Date: 20170421
  Transmission Date: 20170830
  Serious: No
  Sender: FDA-Public Use
  Company Number: US-ZYDUS-011261

PATIENT
  Age: 76 Year
  Sex: Female

DRUGS (1)
  1. ISOSORBIDE. [Suspect]
     Active Substance: ISOSORBIDE
     Indication: AORTIC ANEURYSM
     Dosage: 45 MG DAILY
     Route: 048

REACTIONS (1)
  - Pruritus [Recovered/Resolved]
